FAERS Safety Report 12324687 (Version 2)
Quarter: 2016Q2

REPORT INFORMATION
  Report Type: Spontaneous
  Country: US (occurrence: US)
  Receive Date: 20160502
  Receipt Date: 20160628
  Transmission Date: 20160815
  Serious: Yes (Other)
  Sender: FDA-Public Use
  Company Number: US-BAYER-2016-084812

PATIENT
  Age: 72 Year
  Sex: Female

DRUGS (1)
  1. FINACEA [Suspect]
     Active Substance: AZELAIC ACID
     Indication: ROSACEA
     Dosage: USES TINY LITTLE DROP ON CHEEK USUALLY

REACTIONS (4)
  - Squamous cell carcinoma of skin [None]
  - Photodermatosis [None]
  - Precancerous skin lesion [None]
  - Application site erythema [None]

NARRATIVE: CASE EVENT DATE: 20150506
